FAERS Safety Report 20752931 (Version 1)
Quarter: 2022Q2

REPORT INFORMATION
  Report Type: Spontaneous
  Country: US (occurrence: None)
  Receive Date: 20220426
  Receipt Date: 20220426
  Transmission Date: 20220721
  Serious: No
  Sender: FDA-Public Use
  Company Number: US-ROCHE-2944148

PATIENT
  Sex: Male

DRUGS (2)
  1. ESBRIET [Suspect]
     Active Substance: PIRFENIDONE
     Indication: Pulmonary fibrosis
     Dosage: DAYS 1-8 TAKE1 TABLET BY MOUTH TID, DAYS 8-15 TAKE 2 TABS BY TID, DAY 15 AND ON TAKE 3 TABS THREE TI
     Route: 048
     Dates: start: 202109
  2. DOXAZOSIN [Concomitant]
     Active Substance: DOXAZOSIN MESYLATE

REACTIONS (2)
  - Balance disorder [Unknown]
  - Constipation [Unknown]
